FAERS Safety Report 13398322 (Version 4)
Quarter: 2017Q2

REPORT INFORMATION
  Report Type: Spontaneous
  Country: CA (occurrence: CA)
  Receive Date: 20170403
  Receipt Date: 20170421
  Transmission Date: 20170830
  Serious: Yes (Hospitalization, Other)
  Sender: FDA-Public Use
  Company Number: CA-ALLERGAN-1712658US

PATIENT
  Age: 59 Year
  Sex: Male

DRUGS (2)
  1. OZURDEX [Suspect]
     Active Substance: DEXAMETHASONE
     Indication: CYSTOID MACULAR OEDEMA
     Dosage: 0.7 MG, SINGLE
     Route: 031
     Dates: start: 20170309, end: 20170309
  2. MAVIK [Concomitant]
     Active Substance: TRANDOLAPRIL
     Dosage: UNK

REACTIONS (6)
  - Intraocular pressure increased [Recovering/Resolving]
  - Off label use [Unknown]
  - Corneal oedema [Not Recovered/Not Resolved]
  - Device dislocation [Recovered/Resolved]
  - Vision blurred [Not Recovered/Not Resolved]
  - Corneal disorder [Unknown]

NARRATIVE: CASE EVENT DATE: 201703
